FAERS Safety Report 6466411-8 (Version None)
Quarter: 2009Q4

REPORT INFORMATION
  Report Type: 
  Country: None (occurrence: None)
  Receive Date: 20091202
  Receipt Date: 20091125
  Transmission Date: 20100525
  Serious: Yes (Death, Hospitalization)
  Sender: FDA-Public Use
  Company Number: AU-ROXANE LABORATORIES, INC.-2009-RO-01194RO

PATIENT
  Age: 65 Year
  Sex: Female

DRUGS (3)
  1. METHOTREXATE [Suspect]
     Indication: PSORIASIS
     Route: 048
  2. CISPLATIN [Concomitant]
     Indication: GALLBLADDER CANCER
  3. FLUOROURACIL [Concomitant]
     Indication: GALLBLADDER CANCER

REACTIONS (3)
  - GALLBLADDER CANCER [None]
  - METASTASES TO LIVER [None]
  - METASTASES TO PERITONEUM [None]
